FAERS Safety Report 7626780-X (Version None)
Quarter: 2011Q3

REPORT INFORMATION
  Report Type: 
  Country: None (occurrence: None)
  Receive Date: 20110721
  Receipt Date: 20110708
  Transmission Date: 20111222
  Serious: Yes (Hospitalization)
  Sender: FDA-Public Use
  Company Number: FR-SANOFI-AVENTIS-2011SA043394

PATIENT
  Age: 67 Year
  Sex: Male

DRUGS (7)
  1. CORDARONE [Suspect]
     Route: 048
     Dates: start: 20090101
  2. PRAVASTATIN [Suspect]
     Route: 048
  3. DIGOXIN [Suspect]
     Route: 048
  4. ALFUZOSIN HCL [Suspect]
     Route: 048
  5. FUROSEMIDE [Suspect]
     Route: 048
  6. KARDEGIC [Suspect]
     Route: 048
  7. PREVISCAN [Suspect]
     Route: 048

REACTIONS (1)
  - INTERSTITIAL LUNG DISEASE [None]
